FAERS Safety Report 19397799 (Version 1)
Quarter: 2021Q2

REPORT INFORMATION
  Report Type: Spontaneous
  Country: IR (occurrence: IR)
  Receive Date: 20210610
  Receipt Date: 20210610
  Transmission Date: 20210717
  Serious: Yes (Other)
  Sender: FDA-Public Use
  Company Number: IR-SUN PHARMACEUTICAL INDUSTRIES LTD-2021RR-300051

PATIENT
  Age: 44 Year
  Sex: Male

DRUGS (11)
  1. MEROPENEM. [Suspect]
     Active Substance: MEROPENEM
     Indication: COVID-19
     Dosage: 1000 MILLIGRAM, BID
     Route: 065
  2. PREDNISOLONE. [Suspect]
     Active Substance: PREDNISOLONE
     Indication: COVID-19
     Dosage: 5 MILLIGRAM, DAILY
     Route: 065
  3. LOPINAVIR/RITONAVIR [Interacting]
     Active Substance: LOPINAVIR\RITONAVIR
     Indication: COVID-19
     Dosage: 400 MILLIGRAM/100 MILLIRAM TWICE DAILY
     Route: 065
  4. MYCOPHENOLATE [Suspect]
     Active Substance: MYCOPHENOLIC ACID
     Indication: COVID-19
     Dosage: 720 MILLIGRAM, BID
     Route: 065
  5. OSELTAMIVIR [Suspect]
     Active Substance: OSELTAMIVIR
     Indication: PRODUCT USED FOR UNKNOWN INDICATION
     Dosage: 75 MILLIGRAM, BID
     Route: 065
  6. HYDROXYCHLOROQUINE [Suspect]
     Active Substance: HYDROXYCHLOROQUINE
     Indication: PRODUCT USED FOR UNKNOWN INDICATION
     Dosage: 400 MILLIGRAM, STAT
     Route: 065
  7. METRONIDAZOLE. [Suspect]
     Active Substance: METRONIDAZOLE
     Indication: COVID-19
     Dosage: 500 MILLIGRAM, TID
     Route: 065
  8. LEVOFLOXACIN. [Suspect]
     Active Substance: LEVOFLOXACIN
     Indication: COVID-19
     Dosage: 500 MILLIGRAM, DAILY
     Route: 065
  9. TACROLIMUS. [Suspect]
     Active Substance: TACROLIMUS
     Indication: COVID-19
     Dosage: 1 MILLIGRAM, BID
     Route: 065
  10. HYDROCORTISONE. [Concomitant]
     Active Substance: HYDROCORTISONE
     Indication: COVID-19
     Dosage: 50 MILLIGRAM, TID
     Route: 065
  11. SIROLIMUS. [Suspect]
     Active Substance: SIROLIMUS
     Indication: COVID-19
     Dosage: 1 MILLIGRAM, DAILY
     Route: 065

REACTIONS (2)
  - Off label use [Unknown]
  - Drug interaction [Unknown]
